FAERS Safety Report 7898725-9 (Version None)
Quarter: 2011Q4

REPORT INFORMATION
  Report Type: 
  Country: None (occurrence: None)
  Receive Date: 20111107
  Receipt Date: 20101209
  Transmission Date: 20120403
  Serious: No
  Sender: FDA-Public Use
  Company Number: US-ABBOTT-10P-163-0691032-00

PATIENT
  Sex: Female
  Weight: 99.88 kg

DRUGS (6)
  1. TRICOR [Suspect]
     Dates: start: 20101031
  2. NEXIUM [Concomitant]
     Indication: GASTROOESOPHAGEAL REFLUX DISEASE
  3. IMITREX [Concomitant]
     Indication: MIGRAINE
  4. TOPAMAX [Concomitant]
     Indication: MIGRAINE
  5. TRICOR [Suspect]
     Indication: BLOOD CHOLESTEROL INCREASED
     Dates: start: 20060101, end: 20101027
  6. MULTI-VITAMIN [Concomitant]
     Indication: VITAMIN SUPPLEMENTATION

REACTIONS (4)
  - DRUG DOSE OMISSION [None]
  - ABDOMINAL PAIN UPPER [None]
  - MUSCLE SPASMS [None]
  - DIARRHOEA [None]
